FAERS Safety Report 16532205 (Version 2)
Quarter: 2019Q3

REPORT INFORMATION
  Report Type: Spontaneous
  Country: JP (occurrence: JP)
  Receive Date: 20190704
  Receipt Date: 20190809
  Transmission Date: 20191004
  Serious: Yes (Other)
  Sender: FDA-Public Use
  Company Number: JP-MYLANLABS-2019M1061399

PATIENT
  Age: 78 Year
  Sex: Male
  Weight: 55 kg

DRUGS (14)
  1. VOALLA [Concomitant]
  2. MECOBALAMIN [Concomitant]
     Active Substance: METHYLCOBALAMIN
  3. VALTREX [Suspect]
     Active Substance: VALACYCLOVIR HYDROCHLORIDE
     Indication: HERPES ZOSTER
     Dosage: 1000 MILLIGRAM, TID
     Route: 048
  4. RIVOTRIL [Concomitant]
     Active Substance: CLONAZEPAM
     Dosage: UNK
  5. MAGNESIUM OXIDE. [Concomitant]
     Active Substance: MAGNESIUM OXIDE
  6. ACICLOVIR MYLAN [Suspect]
     Active Substance: ACYCLOVIR
     Indication: PRODUCT USED FOR UNKNOWN INDICATION
     Dosage: UNK
     Route: 048
  7. VALACICLOVIR HYDROCHLORIDE [Suspect]
     Active Substance: VALACYCLOVIR HYDROCHLORIDE
     Indication: HERPES ZOSTER
     Dosage: 1000 MILLIGRAM, TID (AFTER BREAKFAST, LUNCH AND DINNER)
     Route: 048
     Dates: start: 20190529, end: 20190602
  8. LOXOPROFEN SODIUM [Concomitant]
     Active Substance: LOXOPROFEN SODIUM
  9. LOXONIN [Concomitant]
     Active Substance: LOXOPROFEN SODIUM
  10. TIZANIDINE. [Concomitant]
     Active Substance: TIZANIDINE
  11. LYRICA [Concomitant]
     Active Substance: PREGABALIN
  12. TOFISOPAM [Concomitant]
     Active Substance: TOFISOPAM
     Dosage: UNK
     Dates: end: 20190603
  13. IFENPRODIL TARTRATE [Concomitant]
     Active Substance: IFENPRODIL TARTRATE
     Dosage: UNK
     Dates: end: 20190603
  14. CELECOX [Concomitant]
     Active Substance: CELECOXIB

REACTIONS (14)
  - Altered state of consciousness [Recovered/Resolved]
  - Renal impairment [Recovered/Resolved]
  - Dyslalia [Unknown]
  - Encephalitis toxic [Unknown]
  - Grip strength decreased [Unknown]
  - Monoplegia [Unknown]
  - Dysuria [Unknown]
  - Pyelocaliectasis [Unknown]
  - Cerebral infarction [Unknown]
  - Hypoaesthesia [Unknown]
  - Chest X-ray abnormal [Unknown]
  - Sacral radiculopathy [Unknown]
  - Asthenia [Unknown]
  - Gait disturbance [Unknown]

NARRATIVE: CASE EVENT DATE: 20190602
